FAERS Safety Report 14737748 (Version 2)
Quarter: 2018Q2

REPORT INFORMATION
  Report Type: Spontaneous
  Country: NO (occurrence: NO)
  Receive Date: 20180409
  Receipt Date: 20180411
  Transmission Date: 20180711
  Serious: Yes (Disabling)
  Sender: FDA-Public Use
  Company Number: NO-NAPPMUNDI-GBR-2018-0054624

PATIENT
  Age: 41 Year
  Sex: Male

DRUGS (4)
  1. NORSPAN [Suspect]
     Active Substance: BUPRENORPHINE
     Dosage: 5 MCG, Q1H
     Route: 062
     Dates: start: 201710
  2. NORSPAN [Suspect]
     Active Substance: BUPRENORPHINE
     Dosage: 10 MCG, Q1H
     Route: 062
  3. NORSPAN [Suspect]
     Active Substance: BUPRENORPHINE
     Dosage: 20 MCG, Q1H
     Route: 062
  4. NORSPAN [Suspect]
     Active Substance: BUPRENORPHINE
     Indication: PAIN
     Dosage: 30 MCG, Q1H
     Route: 062
     Dates: end: 201801

REACTIONS (18)
  - Rash [Unknown]
  - Asthenia [Unknown]
  - Mental disorder [Unknown]
  - Application site wound [Recovering/Resolving]
  - Bedridden [Unknown]
  - Amino acid level increased [Unknown]
  - Toxicity to various agents [Unknown]
  - Dermal cyst [Recovering/Resolving]
  - Malaise [Unknown]
  - Mental status changes [Unknown]
  - Vitamin D decreased [Unknown]
  - Application site erosion [Recovering/Resolving]
  - Fear [Unknown]
  - Alopecia [Not Recovered/Not Resolved]
  - Pyrexia [Unknown]
  - Drug ineffective [Unknown]
  - Blood folate decreased [Unknown]
  - Application site scar [Not Recovered/Not Resolved]

NARRATIVE: CASE EVENT DATE: 201710
